FAERS Safety Report 25375036 (Version 1)
Quarter: 2025Q2

REPORT INFORMATION
  Report Type: Spontaneous
  Country: US (occurrence: US)
  Receive Date: 20250529
  Receipt Date: 20250529
  Transmission Date: 20250716
  Serious: No
  Sender: GLAXOSMITHKLINE
  Company Number: US-GSK-US2025064730

PATIENT
  Sex: Male

DRUGS (3)
  1. TRELEGY ELLIPTA [Suspect]
     Active Substance: FLUTICASONE FUROATE\UMECLIDINIUM BROMIDE\VILANTEROL TRIFENATATE
     Indication: Chronic obstructive pulmonary disease
     Dosage: UNK, QD
     Route: 048
  2. ALBUTEROL [Concomitant]
     Active Substance: ALBUTEROL
     Indication: Chronic obstructive pulmonary disease
  3. ALBUTEROL [Concomitant]
     Active Substance: ALBUTEROL
     Indication: Dyspnoea

REACTIONS (5)
  - Malaise [Unknown]
  - Dyspnoea [Not Recovered/Not Resolved]
  - Wrong technique in device usage process [Unknown]
  - Drug ineffective [Unknown]
  - Product complaint [Unknown]
